FAERS Safety Report 10206140 (Version 1)
Quarter: 2014Q2

REPORT INFORMATION
  Report Type: Spontaneous
  Country: US (occurrence: US)
  Receive Date: 20140530
  Receipt Date: 20140530
  Transmission Date: 20141212
  Serious: No
  Sender: FDA-Public Use
  Company Number: US-PFIZER INC-2014147399

PATIENT
  Age: 51 Year
  Sex: Male
  Weight: 94.33 kg

DRUGS (4)
  1. LYRICA [Suspect]
     Indication: NEUROPATHY PERIPHERAL
     Dosage: UNK
     Dates: start: 2010
  2. LYRICA [Suspect]
     Dosage: UNK
  3. INSULIN [Concomitant]
     Indication: DIABETES MELLITUS
     Dosage: UNK
  4. IRBESARTAN [Concomitant]
     Indication: BLOOD PRESSURE ABNORMAL
     Dosage: 150 MG, DAILY

REACTIONS (5)
  - Expired product administered [Unknown]
  - Anger [Recovered/Resolved]
  - Agitation [Recovered/Resolved]
  - Insomnia [Unknown]
  - Pain in extremity [Unknown]
